FAERS Safety Report 5575125-8 (Version None)
Quarter: 2007Q4

REPORT INFORMATION
  Report Type: 
  Country: None (occurrence: None)
  Receive Date: 20071227
  Receipt Date: 20071217
  Transmission Date: 20080405
  Serious: Yes (Hospitalization, Other)
  Sender: FDA-Public Use
  Company Number: US-PFIZER INC-2007106387

PATIENT
  Sex: Male
  Weight: 72.6 kg

DRUGS (7)
  1. LIPITOR [Suspect]
     Indication: BLOOD CHOLESTEROL
  2. ZOCOR [Concomitant]
  3. ZETIA [Concomitant]
  4. AVODART [Concomitant]
  5. FLOMAX [Concomitant]
  6. DILTIAZEM [Concomitant]
  7. FLUTICASONE PROPIONATE [Concomitant]

REACTIONS (3)
  - CHROMATURIA [None]
  - HAEMORRHAGE [None]
  - URETERAL NEOPLASM [None]
